FAERS Safety Report 7433846-6 (Version None)
Quarter: 2011Q2

REPORT INFORMATION
  Report Type: 
  Country: None (occurrence: None)
  Receive Date: 20110425
  Receipt Date: 20110414
  Transmission Date: 20111010
  Serious: No
  Sender: FDA-Public Use
  Company Number: US-BIOGENIDEC-2011BI014447

PATIENT
  Sex: Male

DRUGS (1)
  1. TYSABRI [Suspect]
     Indication: MULTIPLE SCLEROSIS
     Route: 042
     Dates: start: 20080123

REACTIONS (5)
  - GAIT DISTURBANCE [None]
  - BALANCE DISORDER [None]
  - INTERVERTEBRAL DISC PROTRUSION [None]
  - COORDINATION ABNORMAL [None]
  - HYPOAESTHESIA [None]
